APPROVED DRUG PRODUCT: AMELUZ
Active Ingredient: AMINOLEVULINIC ACID HYDROCHLORIDE
Strength: 10%
Dosage Form/Route: GEL;TOPICAL
Application: N208081 | Product #001
Applicant: BIOFRONTERA INC
Approved: May 10, 2016 | RLD: Yes | RS: Yes | Type: RX

PATENTS:
Patent 11235169 | Expires: Oct 15, 2040
Patent 11540981 | Expires: Feb 7, 2028
Patent 12280146 | Expires: Dec 8, 2043

EXCLUSIVITY:
Code: D-194 | Date: Oct 4, 2027